FAERS Safety Report 16573577 (Version 2)
Quarter: 2019Q3

REPORT INFORMATION
  Report Type: Spontaneous
  Country: PL (occurrence: PL)
  Receive Date: 20190715
  Receipt Date: 20190724
  Transmission Date: 20191004
  Serious: Yes (Death, Hospitalization, Other)
  Sender: FDA-Public Use
  Company Number: PL-MYLANLABS-2019M1065241

PATIENT
  Age: 58 Year
  Sex: Female

DRUGS (38)
  1. BUDESONIDE. [Suspect]
     Active Substance: BUDESONIDE
     Indication: POLYP
     Dosage: UNK
  2. BUDESONIDE. [Suspect]
     Active Substance: BUDESONIDE
     Indication: OTITIS MEDIA
     Dosage: UNK
     Route: 065
  3. METRONIDAZOLE. [Suspect]
     Active Substance: METRONIDAZOLE
     Indication: INFECTION
     Dosage: UNK
     Route: 065
  4. GANCICLOVIR. [Suspect]
     Active Substance: GANCICLOVIR
     Indication: CYTOMEGALOVIRUS INFECTION
     Dosage: UNK
     Route: 065
  5. AMIKACIN. [Suspect]
     Active Substance: AMIKACIN
     Indication: BACTERIAL INFECTION
     Dosage: UNK
     Route: 065
  6. MYCOPHENOLATE MOFETIL. [Suspect]
     Active Substance: MYCOPHENOLATE MOFETIL
     Indication: IMMUNOSUPPRESSANT DRUG THERAPY
  7. TACROLIMUS. [Suspect]
     Active Substance: TACROLIMUS
     Indication: IMMUNOSUPPRESSION
     Dosage: 0.5 MILLIGRAM, QD
     Route: 065
  8. ITRACONAZOLE. [Suspect]
     Active Substance: ITRACONAZOLE
     Indication: BACTERIAL INFECTION
     Dosage: UNK
     Route: 065
  9. IMIPENEM [Suspect]
     Active Substance: IMIPENEM
     Indication: BACTERIAL INFECTION
     Dosage: UNK
  10. PREDNISONE. [Suspect]
     Active Substance: PREDNISONE
     Indication: IMMUNOSUPPRESSION
     Dosage: 10 MILLIGRAM, QD
     Route: 065
  11. CICLOSPORIN [Suspect]
     Active Substance: CYCLOSPORINE
     Indication: IMMUNOSUPPRESSANT DRUG THERAPY
  12. AMOXICILLIN/CLAVULANIC ACID [Suspect]
     Active Substance: AMOXICILLIN\CLAVULANIC ACID
     Indication: URINARY TRACT INFECTION
     Dosage: UNK
     Route: 065
  13. NYSTATIN. [Suspect]
     Active Substance: NYSTATIN
     Indication: ACINETOBACTER INFECTION
     Dosage: UNK
     Route: 065
  14. CIPROFLOXACINE                     /00697201/ [Suspect]
     Active Substance: CIPROFLOXACIN
     Indication: PRODUCT USED FOR UNKNOWN INDICATION
     Dosage: UNK
     Route: 065
  15. VENLAFAXINE [Concomitant]
     Active Substance: VENLAFAXINE HYDROCHLORIDE
     Indication: ANXIETY DISORDER
     Dosage: UNK
     Route: 065
  16. OPIPRAMOL [Concomitant]
     Active Substance: OPIPRAMOL
     Indication: ANXIETY DISORDER
  17. CEFTAZIDIME. [Suspect]
     Active Substance: CEFTAZIDIME
     Indication: ESCHERICHIA SEPSIS
     Dosage: UNK
  18. CEFTAZIDIME. [Suspect]
     Active Substance: CEFTAZIDIME
     Indication: OTITIS MEDIA
     Dosage: UNK
  19. PREDNISONE. [Suspect]
     Active Substance: PREDNISONE
     Indication: IMMUNOSUPPRESSANT DRUG THERAPY
  20. CEFUROXIME. [Suspect]
     Active Substance: CEFUROXIME
     Indication: BACTERIAL INFECTION
     Dosage: UNK
     Route: 065
  21. TACROLIMUS. [Suspect]
     Active Substance: TACROLIMUS
     Indication: IMMUNOSUPPRESSANT DRUG THERAPY
  22. GLIMEPIRIDE. [Concomitant]
     Active Substance: GLIMEPIRIDE
     Indication: DIABETES MELLITUS
     Dosage: UNK
     Route: 065
  23. PANTOPRAZOLE [Suspect]
     Active Substance: PANTOPRAZOLE
     Indication: PRODUCT USED FOR UNKNOWN INDICATION
     Dosage: UNK
     Route: 065
  24. AMOXICILLIN/CLAVULANIC ACID [Suspect]
     Active Substance: AMOXICILLIN\CLAVULANIC ACID
     Indication: BRONCHITIS
  25. CLINDAMYCIN. [Suspect]
     Active Substance: CLINDAMYCIN
     Indication: OTITIS MEDIA
     Dosage: UNK
     Route: 065
  26. CLINDAMYCIN. [Suspect]
     Active Substance: CLINDAMYCIN
     Indication: POLYP
     Dosage: UNK
     Route: 065
  27. RITUXIMAB. [Concomitant]
     Active Substance: RITUXIMAB
     Indication: LYMPHOCYTE COUNT DECREASED
     Dosage: UNK
     Route: 065
  28. OPIPRAMOL [Concomitant]
     Active Substance: OPIPRAMOL
     Indication: PULMONARY EMBOLISM
     Dosage: UNK
     Route: 065
  29. INSULIN GLARGINE [Suspect]
     Active Substance: INSULIN GLARGINE
     Indication: DIABETES MELLITUS
     Dosage: UNK
     Route: 065
  30. METHYLPREDNISOLONE. [Suspect]
     Active Substance: METHYLPREDNISOLONE
     Indication: IMMUNOSUPPRESSION
     Dosage: UNK
  31. VALGANCICLOVIR. [Suspect]
     Active Substance: VALGANCICLOVIR
     Indication: CYTOMEGALOVIRUS INFECTION
     Dosage: UNK
  32. AMPICILLIN AND SULBACTAM [Suspect]
     Active Substance: AMPICILLIN SODIUM\SULBACTAM SODIUM
     Indication: BACTERIAL INFECTION
     Dosage: UNK
     Route: 065
  33. MYCOPHENOLATE MOFETIL. [Suspect]
     Active Substance: MYCOPHENOLATE MOFETIL
     Indication: IMMUNOSUPPRESSION
     Dosage: 1000 MG, BID
     Route: 065
  34. TAZOBACTAM [Suspect]
     Active Substance: TAZOBACTAM
     Indication: INFECTION
     Dosage: UNK
     Route: 065
  35. AMPHOTERICIN B. [Suspect]
     Active Substance: AMPHOTERICIN B
     Indication: BACTERIAL INFECTION
     Dosage: UNK
     Route: 065
  36. CICLOSPORIN [Suspect]
     Active Substance: CYCLOSPORINE
     Indication: IMMUNOSUPPRESSION
     Dosage: 50 MG, BID
     Route: 065
  37. MIANSERIN [Concomitant]
     Active Substance: MIANSERIN
     Indication: DEPRESSION
     Dosage: UNK
     Route: 065
  38. INSULIN [Concomitant]
     Active Substance: INSULIN NOS
     Indication: DIABETES MELLITUS
     Dosage: UNK

REACTIONS (24)
  - Polyp [Unknown]
  - Otitis media [Unknown]
  - Escherichia urinary tract infection [Unknown]
  - Acinetobacter infection [Unknown]
  - Aural polyp [Unknown]
  - Condition aggravated [Unknown]
  - Hypoproteinaemia [Unknown]
  - Aspergillus infection [Unknown]
  - Sepsis [Fatal]
  - Escherichia sepsis [Unknown]
  - Cytomegalovirus infection [Unknown]
  - Proteus infection [Unknown]
  - Transplant rejection [Unknown]
  - Leukopenia [Unknown]
  - Renal failure [Unknown]
  - Pseudomonas infection [Unknown]
  - Hypogammaglobulinaemia [Unknown]
  - Corynebacterium infection [Unknown]
  - Diabetic ketoacidosis [Unknown]
  - Moraxella infection [Unknown]
  - Candida infection [Unknown]
  - Bronchitis [Unknown]
  - Ear infection [Unknown]
  - Pneumonia klebsiella [Unknown]
